FAERS Safety Report 17859159 (Version 2)
Quarter: 2020Q2

REPORT INFORMATION
  Report Type: Spontaneous
  Country: US (occurrence: US)
  Receive Date: 20200604
  Receipt Date: 20200608
  Transmission Date: 20200714
  Serious: No
  Sender: FDA-Public Use
  Company Number: US-SHIRE-US202017997

PATIENT
  Age: 16 Year
  Sex: Male
  Weight: 69.39 kg

DRUGS (4)
  1. DEXTROAMPHETAMINE. [Concomitant]
     Active Substance: DEXTROAMPHETAMINE
     Indication: ATTENTION DEFICIT HYPERACTIVITY DISORDER
  2. DIAZEPAM. [Concomitant]
     Active Substance: DIAZEPAM
     Indication: CYCLIC VOMITING SYNDROME
  3. COMPRO [Concomitant]
     Active Substance: PROCHLORPERAZINE
     Indication: CYCLIC VOMITING SYNDROME
  4. ADDERALL XR [Suspect]
     Active Substance: AMPHETAMINE ASPARTATE\AMPHETAMINE SULFATE\DEXTROAMPHETAMINE SACCHARATE\DEXTROAMPHETAMINE SULFATE
     Indication: ATTENTION DEFICIT HYPERACTIVITY DISORDER
     Dosage: 30 MILLIGRAM, 1X/DAY:QD
     Route: 065
     Dates: start: 2016

REACTIONS (7)
  - Psychomotor hyperactivity [Recovered/Resolved]
  - Product physical issue [Unknown]
  - Vomiting [Not Recovered/Not Resolved]
  - Therapeutic product effect decreased [Recovered/Resolved]
  - Drug ineffective [Recovered/Resolved]
  - Abnormal behaviour [Recovered/Resolved]
  - Concussion [Recovered/Resolved]

NARRATIVE: CASE EVENT DATE: 201910
